FAERS Safety Report 17675877 (Version 1)
Quarter: 2020Q2

REPORT INFORMATION
  Report Type: Spontaneous
  Country: KR (occurrence: KR)
  Receive Date: 20200416
  Receipt Date: 20200416
  Transmission Date: 20200714
  Serious: Yes (Other)
  Sender: FDA-Public Use
  Company Number: KR-ENDO PHARMACEUTICALS INC-2020-003200

PATIENT
  Age: 63 Year
  Sex: Female

DRUGS (4)
  1. LETROZOLE. [Suspect]
     Active Substance: LETROZOLE
     Indication: BREAST CANCER METASTATIC
     Dosage: 2.5 MG, UNKNOWN (CYCLE 1-11)
     Route: 065
     Dates: start: 201804
  2. PALBOCICLIB [Suspect]
     Active Substance: PALBOCICLIB
     Indication: BREAST CANCER METASTATIC
     Dosage: 150 MG, UNKNOWN
     Route: 065
     Dates: start: 201804
  3. PALBOCICLIB [Suspect]
     Active Substance: PALBOCICLIB
     Dosage: 100 MG, UNKNOWN
     Route: 065
     Dates: start: 201811
  4. LETROZOLE. [Suspect]
     Active Substance: LETROZOLE
     Dosage: UNK UNKNOWN, UNKNOWN (CYCLE 12)
     Route: 065

REACTIONS (1)
  - Thrombocytopenia [Unknown]

NARRATIVE: CASE EVENT DATE: 2019
